FAERS Safety Report 16905937 (Version 2)
Quarter: 2019Q4

REPORT INFORMATION
  Report Type: Report from Study
  Country: None (occurrence: EC)
  Receive Date: 20191010
  Receipt Date: 20191023
  Transmission Date: 20200122
  Serious: Yes (Death, Hospitalization)
  Sender: FDA-Public Use
  Company Number: EC-ABBVIE-19K-047-2955867-00

PATIENT
  Age: 60 Year
  Sex: Female
  Weight: 65 kg

DRUGS (1)
  1. ZEMPLAR [Suspect]
     Active Substance: PARICALCITOL
     Indication: HYPERPARATHYROIDISM SECONDARY
     Route: 042
     Dates: start: 20171222, end: 201910

REACTIONS (3)
  - Sepsis [Unknown]
  - Myocardial infarction [Fatal]
  - Blood phosphorus increased [Unknown]

NARRATIVE: CASE EVENT DATE: 20191004
